FAERS Safety Report 4941576-5 (Version None)
Quarter: 2006Q1

REPORT INFORMATION
  Report Type: 
  Country: None (occurrence: None)
  Receive Date: 20060308
  Receipt Date: 20060227
  Transmission Date: 20060701
  Serious: Yes (Hospitalization)
  Sender: FDA-Public Use
  Company Number: 2006-02-1665

PATIENT
  Age: 38 Year
  Sex: Female

DRUGS (2)
  1. INTERFERON ALFA-2B INJECTABLE [Suspect]
     Indication: HEPATITIS C
  2. RIBAVIRIN [Suspect]
     Indication: HEPATITIS C

REACTIONS (5)
  - INNER EAR DISORDER [None]
  - MENINGITIS ASEPTIC [None]
  - RETINAL DETACHMENT [None]
  - TINNITUS [None]
  - VOGT-KOYANAGI-HARADA SYNDROME [None]
